FAERS Safety Report 23836467 (Version 1)
Quarter: 2024Q2

REPORT INFORMATION
  Report Type: Spontaneous
  Country: DE (occurrence: DE)
  Receive Date: 20240509
  Receipt Date: 20240509
  Transmission Date: 20240716
  Serious: Yes (Other)
  Sender: FDA-Public Use
  Company Number: DE-SANDOZ-SDZ2024DE039742

PATIENT
  Age: 66 Year
  Sex: Male

DRUGS (5)
  1. ATORVASTATIN [Suspect]
     Active Substance: ATORVASTATIN
     Indication: Extrasystoles
     Dosage: 10 MILLIGRAM, QD (10 MG (0-0-1)
     Route: 065
  2. FLECAINIDE [Suspect]
     Active Substance: FLECAINIDE
     Indication: Extrasystoles
     Dosage: 100 MILLIGRAM, QD (100 MG (1-0-0)
     Route: 065
  3. CANDESARTAN [Suspect]
     Active Substance: CANDESARTAN
     Indication: Extrasystoles
     Dosage: 40 MILLIGRAM (40 MG (10-0))
     Route: 065
  4. BISOPROLOL FUMARATE [Suspect]
     Active Substance: BISOPROLOL FUMARATE
     Indication: Extrasystoles
     Dosage: 2.5 MILLIGRAM (2.5 MG (1-0-1)
     Route: 065
  5. ASPIRIN [Suspect]
     Active Substance: ASPIRIN
     Indication: Extrasystoles
     Dosage: UNK 100 (1-0-1)
     Route: 065

REACTIONS (3)
  - Heart rate irregular [Unknown]
  - Hyperhidrosis [Unknown]
  - Nightmare [Unknown]
